FAERS Safety Report 5950055-8 (Version None)
Quarter: 2008Q4

REPORT INFORMATION
  Report Type: 
  Country: None (occurrence: None)
  Receive Date: 20081112
  Receipt Date: 20081031
  Transmission Date: 20090506
  Serious: Yes (Hospitalization)
  Sender: FDA-Public Use
  Company Number: CA-ROCHE-588472

PATIENT
  Sex: Male

DRUGS (7)
  1. PEGASYS [Suspect]
     Indication: HEPATITIS C
     Route: 058
     Dates: start: 20080101, end: 20080901
  2. PEGASYS [Suspect]
     Route: 058
     Dates: start: 20080915
  3. COPEGUS [Suspect]
     Indication: HEPATITIS C
     Route: 048
     Dates: start: 20080101, end: 20080901
  4. COPEGUS [Suspect]
     Route: 048
     Dates: start: 20080915
  5. VENLAFAXINE HCL [Concomitant]
     Indication: DEPRESSION
     Route: 048
  6. METHADONE HCL [Concomitant]
     Dosage: DOSAGE REGIMEN EVERY 24-36 HOURS PRN.
     Route: 048
  7. MORPHINE [Concomitant]

REACTIONS (7)
  - BLOOD URINE PRESENT [None]
  - IRRITABILITY [None]
  - MENTAL DISORDER [None]
  - NAUSEA [None]
  - POLYDIPSIA [None]
  - POLYURIA [None]
  - URINARY TRACT INFECTION [None]
